FAERS Safety Report 23837360 (Version 1)
Quarter: 2024Q2

REPORT INFORMATION
  Report Type: Spontaneous
  Country: US (occurrence: None)
  Receive Date: 20240508
  Receipt Date: 20240508
  Transmission Date: 20240716
  Serious: Yes (Death)
  Sender: FDA-Public Use
  Company Number: None

PATIENT
  Age: 50 Year
  Sex: Male

DRUGS (1)
  1. IBRANCE [Suspect]
     Active Substance: PALBOCICLIB
     Indication: Metastases to breast
     Dosage: OTHER FREQUENCY : QD 21 D  7 D OFF;?
     Route: 048
     Dates: start: 20240118

REACTIONS (1)
  - Death [None]

NARRATIVE: CASE EVENT DATE: 20240423
